FAERS Safety Report 11050086 (Version 2)
Quarter: 2015Q2

REPORT INFORMATION
  Report Type: Report from Study
  Country: BR (occurrence: BR)
  Receive Date: 20150420
  Receipt Date: 20150526
  Transmission Date: 20150821
  Serious: Yes (Other)
  Sender: FDA-Public Use
  Company Number: PHHY2013BR020604

PATIENT
  Sex: Male
  Weight: 100 kg

DRUGS (2)
  1. ALENIA                             /01538101/ [Concomitant]
     Active Substance: BUDESONIDE\FORMOTEROL FUMARATE
     Indication: BRONCHITIS
     Route: 065
  2. FORADIL [Suspect]
     Active Substance: FORMOTEROL FUMARATE
     Indication: BRONCHITIS
     Dosage: UNK, BID
     Route: 055

REACTIONS (7)
  - Hyperhidrosis [Recovered/Resolved]
  - Weight increased [Recovering/Resolving]
  - Dyspnoea [Recovered/Resolved]
  - Chemical burn of respiratory tract [Recovering/Resolving]
  - Wrong drug administered [Unknown]
  - Hypertension [Unknown]
  - Wrong technique in drug usage process [Unknown]
